FAERS Safety Report 5113056-8 (Version None)
Quarter: 2006Q3

REPORT INFORMATION
  Report Type: 
  Country: None (occurrence: None)
  Receive Date: 20060922
  Receipt Date: 20060413
  Transmission Date: 20061208
  Serious: Yes (Hospitalization)
  Sender: FDA-Public Use
  Company Number: FR-BOEHRINGER INGELHEIM GMBH, GERMANY-2006-FF-00288FF

PATIENT
  Age: 47 Year
  Sex: Male
  Weight: 75 kg

DRUGS (5)
  1. APTIVUS [Suspect]
     Indication: HIV INFECTION
     Dosage: TPV/RTV: 500/100 MG B.I.D.
     Route: 048
     Dates: start: 20060201, end: 20060322
  2. APTIVUS [Suspect]
     Dosage: TPV/RTV: 500/200 MG B.I.D.
     Route: 048
     Dates: start: 20060323
  3. DEPAKENE [Suspect]
     Indication: EPILEPSY
     Route: 048
  4. FUZEON [Concomitant]
     Indication: HIV INFECTION
     Route: 058
  5. WELLVONE [Concomitant]
     Route: 048

REACTIONS (3)
  - ANTICONVULSANT DRUG LEVEL DECREASED [None]
  - CONVULSION [None]
  - DRUG INTERACTION [None]
